FAERS Safety Report 14956959 (Version 3)
Quarter: 2018Q4

REPORT INFORMATION
  Report Type: Report from Study
  Country: US (occurrence: US)
  Receive Date: 20180531
  Receipt Date: 20181224
  Transmission Date: 20190204
  Serious: Yes (Other)
  Sender: FDA-Public Use
  Company Number: PHHY2016US084034

PATIENT
  Age: 32 Year
  Sex: Female

DRUGS (1)
  1. GILENYA [Suspect]
     Active Substance: FINGOLIMOD HYDROCHLORIDE
     Indication: MULTIPLE SCLEROSIS
     Dosage: UNK, QD
     Route: 048

REACTIONS (6)
  - Dizziness postural [Recovered/Resolved]
  - Headache [Recovered/Resolved]
  - Urinary tract infection [Recovered/Resolved]
  - Frequent bowel movements [Not Recovered/Not Resolved]
  - Chlamydial infection [Unknown]
  - Cystitis [Recovered/Resolved]

NARRATIVE: CASE EVENT DATE: 20160228
